FAERS Safety Report 4555034-3 (Version None)
Quarter: 2004Q4

REPORT INFORMATION
  Report Type: 
  Country: None (occurrence: None)
  Receive Date: 20041217
  Receipt Date: 20040809
  Transmission Date: 20050328
  Serious: No
  Sender: FDA-Public Use
  Company Number: 2004-BP-04516BP

PATIENT
  Age: 56 Year
  Sex: Female

DRUGS (13)
  1. SPIRIVA [Suspect]
     Indication: ASTHMA
     Dosage: 18 MCG (18 MCG, 1 IN 1 D), IH
     Route: 055
     Dates: start: 20040526, end: 20040604
  2. ADVAIR (SERETIDE MITE) [Concomitant]
  3. SEREVENT [Concomitant]
  4. ACCOLATE [Concomitant]
  5. ALLEGRA [Concomitant]
  6. ASPIRIN [Concomitant]
  7. VIOXX [Concomitant]
  8. MAXAIRE [Concomitant]
  9. BROMOFED [Concomitant]
  10. PRETEST` [Concomitant]
  11. DETROL [Concomitant]
  12. VITAMINS (VITAMINS) [Concomitant]
  13. ATROVENT [Concomitant]

REACTIONS (1)
  - WHEEZING [None]
